FAERS Safety Report 5474123-2 (Version None)
Quarter: 2007Q3

REPORT INFORMATION
  Report Type: 
  Country: None (occurrence: None)
  Receive Date: 20070830
  Receipt Date: 20070310
  Transmission Date: 20080115
  Serious: Yes (Other)
  Sender: FDA-Public Use
  Company Number: 223980

PATIENT
  Age: 72 Year
  Sex: Female

DRUGS (8)
  1. XOLAIR [Suspect]
     Indication: ASTHMA
     Dosage: 150 MG, 1/MONTH
     Dates: start: 20050310
  2. GLIPIZIDE [Concomitant]
  3. COZAAR [Concomitant]
  4. CRESTOR [Concomitant]
  5. ACCOLATE [Concomitant]
  6. AZMACORT [Concomitant]
  7. SEREVENT [Concomitant]
  8. HYDROCHLOROTHIAZIDE + TRIMATERENE (HYDROCHLOROTHIAZIDE, TRIAMTERENE) [Concomitant]

REACTIONS (1)
  - BREAST CANCER [None]
